FAERS Safety Report 4476847-2 (Version None)
Quarter: 2004Q4

REPORT INFORMATION
  Report Type: 
  Country: None (occurrence: None)
  Receive Date: 20041013
  Receipt Date: 20041005
  Transmission Date: 20050328
  Serious: Yes (Hospitalization, Disabling)
  Sender: FDA-Public Use
  Company Number: 200414265BCC

PATIENT
  Age: 80 Year
  Sex: Female
  Weight: 31.7518 kg

DRUGS (4)
  1. ALEVE [Suspect]
     Indication: MUSCLE STRAIN
     Dosage: 1760 MG, QD, ORAL
     Route: 048
  2. ALEVE [Suspect]
     Indication: MYALGIA
     Dosage: 1760 MG, QD, ORAL
     Route: 048
  3. BLOOD PRESSURE PILL (NOS) [Concomitant]
  4. CRESTOR [Concomitant]

REACTIONS (6)
  - ANAEMIA [None]
  - LYMPHOMA [None]
  - METASTASES TO BONE [None]
  - MOBILITY DECREASED [None]
  - OEDEMA PERIPHERAL [None]
  - WHEELCHAIR USER [None]
